FAERS Safety Report 21044347 (Version 1)
Quarter: 2022Q3

REPORT INFORMATION
  Report Type: Spontaneous
  Country: DE (occurrence: DE)
  Receive Date: 20220705
  Receipt Date: 20220705
  Transmission Date: 20221027
  Serious: Yes (Disabling)
  Sender: FDA-Public Use
  Company Number: None

PATIENT
  Age: 42 Year
  Sex: Female
  Weight: 40 kg

DRUGS (1)
  1. CIPROFLOXACIN HYDROCHLORIDE [Suspect]
     Active Substance: CIPROFLOXACIN HYDROCHLORIDE
     Indication: Product used for unknown indication
     Dosage: 1500 MG, QD (EVERY DAYS 2 SEPARATED DOSES)
     Route: 065
     Dates: start: 20210908, end: 20210911

REACTIONS (6)
  - Sleep disorder [Unknown]
  - Depression [Unknown]
  - Suicidal ideation [Unknown]
  - Product prescribing error [Unknown]
  - Product prescribing issue [Unknown]
  - Overdose [Unknown]
